FAERS Safety Report 6236357-9 (Version None)
Quarter: 2009Q2

REPORT INFORMATION
  Report Type: 
  Country: None (occurrence: None)
  Receive Date: 20090617
  Receipt Date: 20090609
  Transmission Date: 20091009
  Serious: Yes (Other)
  Sender: FDA-Public Use
  Company Number: 2009US-24727

PATIENT
  Age: 21 Year
  Sex: Female

DRUGS (2)
  1. ISOTRETINOIN [Suspect]
     Indication: DRUG USE FOR UNKNOWN INDICATION
     Dosage: 40 MG, BID, ORAL
     Route: 048
     Dates: start: 20071004, end: 20080424
  2. ISOTRETINOIN [Suspect]
     Indication: DRUG USE FOR UNKNOWN INDICATION
     Dosage: 20 MG, ORAL
     Route: 048

REACTIONS (2)
  - DRUG EXPOSURE DURING PREGNANCY [None]
  - PREGNANCY WITH IMPLANT CONTRACEPTIVE [None]
